FAERS Safety Report 10426752 (Version 1)
Quarter: 2014Q3

REPORT INFORMATION
  Report Type: Spontaneous
  Country: US (occurrence: None)
  Receive Date: 20140902
  Receipt Date: 20140902
  Transmission Date: 20150326
  Serious: Yes (Other)
  Sender: FDA-Public Use
  Company Number: None

PATIENT
  Age: 80 Year
  Sex: Female
  Weight: 74.84 kg

DRUGS (1)
  1. MYRBETRIQ [Suspect]
     Active Substance: MIRABEGRON
     Indication: URINARY INCONTINENCE
     Dosage: 30
     Dates: start: 20140430, end: 20140630

REACTIONS (2)
  - Onychomycosis [None]
  - Onychomadesis [None]

NARRATIVE: CASE EVENT DATE: 20140814
